FAERS Safety Report 4738761-4 (Version None)
Quarter: 2005Q3

REPORT INFORMATION
  Report Type: 
  Country: None (occurrence: None)
  Receive Date: 20050808
  Receipt Date: 20050808
  Transmission Date: 20060218
  Serious: Yes (Hospitalization, Other)
  Sender: FDA-Public Use
  Company Number: None

PATIENT
  Age: 20 Year
  Sex: Female
  Weight: 56.6996 kg

DRUGS (2)
  1. NEURONTIN [Suspect]
     Indication: BIPOLAR DISORDER
     Dosage: ORAL
     Route: 048
     Dates: start: 20050101, end: 20050101
  2. LEXAPRO [Suspect]
     Indication: BIPOLAR DISORDER
     Dosage: ORAL
     Route: 048
     Dates: start: 20050101, end: 20050101

REACTIONS (16)
  - ANGER [None]
  - ANXIETY [None]
  - CRYING [None]
  - DEPRESSION [None]
  - DYSPHAGIA [None]
  - FEELING ABNORMAL [None]
  - HEADACHE [None]
  - HOSTILITY [None]
  - HYPOAESTHESIA [None]
  - MALAISE [None]
  - MANIA [None]
  - MUSCLE TIGHTNESS [None]
  - NIGHTMARE [None]
  - PAIN [None]
  - PSYCHOTIC DISORDER [None]
  - SUICIDAL IDEATION [None]
